FAERS Safety Report 10201442 (Version 2)
Quarter: 2014Q2

REPORT INFORMATION
  Report Type: Spontaneous
  Country: FR (occurrence: FR)
  Receive Date: 20140528
  Receipt Date: 20140528
  Transmission Date: 20141212
  Serious: Yes (Other)
  Sender: FDA-Public Use
  Company Number: FR-ASTELLAS-2011EU009283

PATIENT
  Age: 27 Year
  Sex: Female

DRUGS (8)
  1. TACROLIMUS SYSTEMIC [Suspect]
     Indication: TRANSPLANT
     Route: 065
  2. PROTOPIC [Suspect]
     Indication: TRANSPLANT REJECTION
     Route: 061
  3. PREDNISONE [Concomitant]
     Indication: IMMUNOSUPPRESSION
     Route: 065
  4. MYCOPHENOLATE MOFETIL [Concomitant]
     Indication: IMMUNOSUPPRESSION
     Dosage: 2 G/DAY, UNKNOWN FREQ.
     Route: 065
  5. MYCOPHENOLATE MOFETIL [Concomitant]
     Dosage: 1 G, UNK
     Route: 065
  6. ANTITHYMOCYTE IMMUNOGLOBULIN [Concomitant]
     Indication: IMMUNOSUPPRESSION
     Route: 065
  7. ANTITHYMOCYTE IMMUNOGLOBULIN [Concomitant]
     Route: 065
  8. PREDNISOLON                        /00016201/ [Concomitant]
     Indication: IMMUNOSUPPRESSION
     Dosage: UNK UNK, UNKNOWN FREQ.
     Route: 065

REACTIONS (2)
  - Transplant rejection [Unknown]
  - Off label use [Unknown]
